FAERS Safety Report 8607718-5 (Version None)
Quarter: 2012Q3

REPORT INFORMATION
  Report Type: 
  Country: None (occurrence: None)
  Receive Date: 20120821
  Receipt Date: 20120817
  Transmission Date: 20120928
  Serious: Yes (Other)
  Sender: FDA-Public Use
  Company Number: US-PFIZER INC-2012198898

PATIENT
  Age: 20 Year
  Sex: Female
  Weight: 66.7 kg

DRUGS (9)
  1. TACROLIMUS [Concomitant]
     Dosage: 6 MG, 2X/DAY
     Route: 048
     Dates: start: 20110526
  2. PREDNISONE [Concomitant]
     Indication: TRANSPLANT
     Dosage: 10 MG, 1X/DAY
     Route: 048
     Dates: start: 20110526, end: 20110622
  3. SULFAMETHOXAZOLE AND TRIMETHOPRIM [Concomitant]
  4. RAPAMUNE [Suspect]
     Indication: TRANSPLANT
     Dosage: 3 MG, 1X/DAY
     Route: 048
     Dates: end: 20110526
  5. MYCOPHENOLATE MEFETIL [Suspect]
     Indication: TRANSPLANT
     Dosage: 750 MG, 2X/DAY
     Route: 048
     Dates: end: 20110526
  6. ATORVASTATIN CALCIUM [Concomitant]
  7. OMEPRAZOLE [Concomitant]
  8. LISINOPRIL [Concomitant]
  9. TACROLIMUS [Concomitant]
     Indication: TRANSPLANT
     Dosage: 5 MG, 2X/DAY
     Route: 048
     Dates: end: 20110526

REACTIONS (1)
  - ABORTION SPONTANEOUS [None]
